FAERS Safety Report 9381785 (Version 1)
Quarter: 2013Q3

REPORT INFORMATION
  Report Type: Spontaneous
  Country: FR (occurrence: FR)
  Receive Date: 20130703
  Receipt Date: 20130703
  Transmission Date: 20140515
  Serious: Yes (Hospitalization)
  Sender: FDA-Public Use
  Company Number: FR-ASTRAZENECA-2013SE48971

PATIENT
  Age: 60 Year
  Sex: Male

DRUGS (1)
  1. NAROPEINE [Suspect]
     Indication: LOCAL ANAESTHESIA
     Route: 058
     Dates: start: 201306, end: 201306

REACTIONS (6)
  - Mydriasis [Recovered/Resolved]
  - Coma [Recovered/Resolved]
  - Muscle rigidity [Recovered/Resolved]
  - Apnoea [Recovered/Resolved]
  - Off label use [Recovered/Resolved]
  - Incorrect route of drug administration [Recovered/Resolved]
